APPROVED DRUG PRODUCT: ZOLEDRONIC ACID
Active Ingredient: ZOLEDRONIC ACID
Strength: EQ 5MG BASE/100ML
Dosage Form/Route: INJECTABLE;INTRAVENOUS
Application: A209125 | Product #001
Applicant: EUGIA PHARMA SPECIALITIES LTD
Approved: Dec 8, 2017 | RLD: No | RS: No | Type: DISCN